FAERS Safety Report 24830770 (Version 4)
Quarter: 2025Q1

REPORT INFORMATION
  Report Type: Report from Study
  Country: CA (occurrence: CA)
  Receive Date: 20250110
  Receipt Date: 20250221
  Transmission Date: 20250408
  Serious: Yes (Other)
  Sender: TEVA
  Company Number: CA-TEVA-VS-3284756

PATIENT
  Age: 29 Year
  Sex: Female

DRUGS (1)
  1. AJOVY [Suspect]
     Active Substance: FREMANEZUMAB-VFRM
     Indication: Migraine prophylaxis
     Dosage: LAST DOSE ADMINISTERED DATE 2024-12-20
     Route: 058
     Dates: start: 20240401, end: 20241220

REACTIONS (6)
  - Graves^ disease [Unknown]
  - Blood thyroid stimulating hormone abnormal [Unknown]
  - Inappropriate schedule of product administration [Unknown]
  - Joint swelling [Unknown]
  - Chest pain [Unknown]
  - Peripheral swelling [Unknown]

NARRATIVE: CASE EVENT DATE: 20241220
